FAERS Safety Report 20646026 (Version 2)
Quarter: 2022Q2

REPORT INFORMATION
  Report Type: Spontaneous
  Country: US (occurrence: US)
  Receive Date: 20220329
  Receipt Date: 20220405
  Transmission Date: 20220720
  Serious: Yes (Other)
  Sender: FDA-Public Use
  Company Number: US-TOLMAR, INC.-22US033636

PATIENT
  Sex: Male

DRUGS (23)
  1. ELIGARD [Suspect]
     Active Substance: LEUPROLIDE ACETATE
     Indication: Prostate cancer
     Dosage: UNK
     Dates: start: 20170428
  2. ELIGARD [Suspect]
     Active Substance: LEUPROLIDE ACETATE
     Dosage: UNK
     Dates: start: 20171102
  3. ELIGARD [Suspect]
     Active Substance: LEUPROLIDE ACETATE
     Dosage: UNK
     Dates: start: 20180516
  4. ELIGARD [Suspect]
     Active Substance: LEUPROLIDE ACETATE
     Dosage: UNK
     Dates: start: 20181217
  5. ELIGARD [Suspect]
     Active Substance: LEUPROLIDE ACETATE
     Dosage: UNK
     Dates: start: 20190621
  6. ELIGARD [Suspect]
     Active Substance: LEUPROLIDE ACETATE
     Dosage: UNK
     Dates: start: 20191219
  7. ELIGARD [Suspect]
     Active Substance: LEUPROLIDE ACETATE
     Dosage: UNK
     Dates: start: 20200113
  8. ELIGARD [Suspect]
     Active Substance: LEUPROLIDE ACETATE
     Dosage: UNK
     Dates: start: 20200715
  9. RADIATION THERAPY [Suspect]
     Active Substance: RADIATION THERAPY
     Indication: Chest injury
     Dosage: 30 UNK
     Dates: start: 20170508, end: 20170525
  10. RADIATION THERAPY [Suspect]
     Active Substance: RADIATION THERAPY
     Indication: Bone lesion
     Dosage: 30 UNK
     Dates: start: 20180820, end: 20180822
  11. RADIATION THERAPY [Suspect]
     Active Substance: RADIATION THERAPY
     Dosage: 65 UNK
     Dates: start: 20190408, end: 20190523
  12. RADIATION THERAPY [Suspect]
     Active Substance: RADIATION THERAPY
     Dosage: UNK
     Dates: start: 20200317, end: 20200401
  13. ZYTIGA [Suspect]
     Active Substance: ABIRATERONE ACETATE
     Indication: Product used for unknown indication
     Dosage: UNK
     Dates: start: 20170509
  14. ZYTIGA [Suspect]
     Active Substance: ABIRATERONE ACETATE
     Dosage: UNK
     Dates: start: 201806, end: 20200211
  15. PREDNISONE [Suspect]
     Active Substance: PREDNISONE
     Indication: Product used for unknown indication
     Dosage: UNK
     Dates: start: 20170509, end: 20171108
  16. DEXAMETHASONE [Suspect]
     Active Substance: DEXAMETHASONE
     Indication: Product used for unknown indication
     Dosage: UNK
     Dates: start: 20171108
  17. DEXAMETHASONE [Suspect]
     Active Substance: DEXAMETHASONE
     Indication: Prostate cancer
     Dosage: UNK
     Dates: start: 201806, end: 20200713
  18. DEXAMETHASONE [Suspect]
     Active Substance: DEXAMETHASONE
     Dosage: UNK
     Dates: start: 20210324
  19. ABIRATERONE [Suspect]
     Active Substance: ABIRATERONE
     Indication: Prostate cancer
     Dosage: UNK
     Dates: start: 20210324, end: 20210615
  20. TAXOTERE [Suspect]
     Active Substance: DOCETAXEL
     Indication: Product used for unknown indication
     Dosage: UNK
     Dates: start: 20180119, end: 20180418
  21. CARBOPLATIN [Suspect]
     Active Substance: CARBOPLATIN
     Indication: Product used for unknown indication
     Dosage: UNK
     Dates: start: 20180204
  22. XGEVA [Concomitant]
     Active Substance: DENOSUMAB
     Indication: Product used for unknown indication
     Dosage: UNK MILLIGRAM
     Dates: start: 20210715, end: 20220316
  23. CASODEX [Concomitant]
     Active Substance: BICALUTAMIDE
     Indication: Prostate cancer
     Dosage: UNK
     Dates: start: 20170428, end: 20170531

REACTIONS (10)
  - Ureteric injury [Unknown]
  - Large intestine perforation [Unknown]
  - Arterial injury [Unknown]
  - Intestinal obstruction [Unknown]
  - Prostate cancer [Unknown]
  - Muscular weakness [Unknown]
  - Radiation injury [Unknown]
  - COVID-19 [Unknown]
  - Prostatic specific antigen increased [Unknown]
  - Hot flush [Unknown]

NARRATIVE: CASE EVENT DATE: 20170601
